FAERS Safety Report 4490769-2 (Version None)
Quarter: 2004Q4

REPORT INFORMATION
  Report Type: 
  Country: None (occurrence: None)
  Receive Date: 20041020
  Receipt Date: 20041013
  Transmission Date: 20050328
  Serious: Yes (Death)
  Sender: FDA-Public Use
  Company Number: B0348461A

PATIENT
  Sex: 0

DRUGS (3)
  1. EPIVIR [Suspect]
     Indication: SYSTEMIC ANTIVIRAL TREATMENT
     Dosage: 150 MG AT NIGHT, ORAL
     Route: 048
  2. STAVUDINE (STAVUDINE) [Suspect]
     Indication: SYSTEMIC ANTIVIRAL TREATMENT
     Dosage: ORAL
     Route: 048
  3. GPO-VIR TABLET [Suspect]
     Indication: SYSTEMIC ANTIVIRAL TREATMENT
     Dosage: ORAL
     Route: 048

REACTIONS (2)
  - IMMUNE RECONSTITUTION SYNDROME [None]
  - MYCOBACTERIUM AVIUM COMPLEX INFECTION [None]
